FAERS Safety Report 7673685-4 (Version None)
Quarter: 2011Q3

REPORT INFORMATION
  Report Type: 
  Country: None (occurrence: None)
  Receive Date: 20110810
  Receipt Date: 20110804
  Transmission Date: 20111222
  Serious: Yes (Death)
  Sender: FDA-Public Use
  Company Number: US-TYCO HEALTHCARE/MALLINCKRODT-T201101522

PATIENT
  Sex: Male

DRUGS (1)
  1. EXALGO [Suspect]
     Indication: PAIN

REACTIONS (1)
  - DEATH [None]
